FAERS Safety Report 4864247-2 (Version None)
Quarter: 2005Q4

REPORT INFORMATION
  Report Type: 
  Country: None (occurrence: None)
  Receive Date: 20051222
  Receipt Date: 20051213
  Transmission Date: 20060501
  Serious: Yes (Disabling)
  Sender: FDA-Public Use
  Company Number: 2005AP06421

PATIENT
  Age: 56 Year
  Sex: Female

DRUGS (1)
  1. MARCAINE [Suspect]
     Indication: SPINAL ANAESTHESIA
     Route: 037
     Dates: start: 20051202, end: 20051202

REACTIONS (5)
  - HYPOAESTHESIA [None]
  - MONOPLEGIA [None]
  - PAIN [None]
  - PAIN IN EXTREMITY [None]
  - PARAESTHESIA [None]
